FAERS Safety Report 11009728 (Version 1)
Quarter: 2015Q2

REPORT INFORMATION
  Report Type: Spontaneous
  Country: US (occurrence: None)
  Receive Date: 20150409
  Receipt Date: 20150409
  Transmission Date: 20150821
  Serious: Yes (Other)
  Sender: FDA-Public Use
  Company Number: None

PATIENT
  Age: 62 Year
  Sex: Female

DRUGS (3)
  1. HCTZ/TRIAMT [Concomitant]
  2. RIBASPHERE [Suspect]
     Active Substance: RIBAVIRIN
     Route: 048
  3. SOVALDI [Suspect]
     Active Substance: SOFOSBUVIR
     Indication: CHRONIC HEPATITIS C
     Route: 048
     Dates: start: 20150318

REACTIONS (4)
  - Pruritus [None]
  - Insomnia [None]
  - Fatigue [None]
  - Mood swings [None]

NARRATIVE: CASE EVENT DATE: 20150318
